FAERS Safety Report 7825630-6 (Version None)
Quarter: 2011Q4

REPORT INFORMATION
  Report Type: 
  Country: None (occurrence: None)
  Receive Date: 20111019
  Receipt Date: 20111017
  Transmission Date: 20120403
  Serious: No
  Sender: FDA-Public Use
  Company Number: US-BAYER-2011-099906

PATIENT
  Age: 30 Year
  Sex: Female

DRUGS (1)
  1. EOVIST [Suspect]
     Indication: NUCLEAR MAGNETIC RESONANCE IMAGING
     Dosage: 10 ML, UNK
     Route: 042
     Dates: start: 20111014, end: 20111014

REACTIONS (2)
  - THROAT IRRITATION [None]
  - VOMITING [None]
